FAERS Safety Report 8762908 (Version 2)
Quarter: 2012Q4

REPORT INFORMATION
  Report Type: Spontaneous
  Country: US (occurrence: None)
  Receive Date: 20120824
  Receipt Date: 20120906
  Transmission Date: 20130627
  Serious: Yes (Other)
  Sender: FDA-Public Use
  Company Number: 2012033106

PATIENT
  Sex: Female

DRUGS (2)
  1. PRIVIGIN (IMMUNE GLOBULIN INTRAVENOUS (HUMAN) 10% LIQUID) [Suspect]
     Indication: CHRONIC INFLAMMATORY DEMYELINATING POLYRADICULONEUROPATHY
     Route: 042
  2. SOLU-MEDROL (METHYLPREDNISOLONE SODIUM SUCCINATE) [Suspect]

REACTIONS (5)
  - Quadriparesis [None]
  - Respiratory failure [None]
  - Drug ineffective for unapproved indication [None]
  - Asthenia [None]
  - Dysphagia [None]
